FAERS Safety Report 5371582-0 (Version None)
Quarter: 2007Q2

REPORT INFORMATION
  Report Type: 
  Country: None (occurrence: None)
  Receive Date: 20070625
  Receipt Date: 20070608
  Transmission Date: 20071010
  Serious: Yes (Death, Hospitalization, Other)
  Sender: FDA-Public Use
  Company Number: 07-001275

PATIENT
  Age: 68 Year
  Sex: Female

DRUGS (13)
  1. ERYC [Suspect]
  2. LOVASTATIN [Suspect]
     Indication: HYPERCHOLESTEROLAEMIA
     Dosage: 20 MG, BID
  3. AMPICILLIN SODIUM W/SULBACTAM SODIUM (AMPICILLIN SODIUM, SULBACTAM SOD [Concomitant]
  4. AMOXICLAV /01000301/ (AMOXICILLIN, CLAVULANATE POTASSIUM) [Concomitant]
  5. FUROSEMIDE [Concomitant]
  6. SUCRALFATE [Concomitant]
  7. RANITIDINE [Concomitant]
  8. ALLOPURINOL [Concomitant]
  9. INSULIN (INSULIN) [Concomitant]
  10. ISOSORBIDE (ISOSORBIDE) [Concomitant]
  11. ENALAPRIL (ENALAPRIL) [Concomitant]
  12. DIGOXIN [Concomitant]
  13. PREDNISONE TAB [Concomitant]

REACTIONS (11)
  - ALDOLASE INCREASED [None]
  - BLOOD PHOSPHORUS INCREASED [None]
  - DRUG INTERACTION [None]
  - IDIOPATHIC PULMONARY FIBROSIS [None]
  - MITRAL VALVE INCOMPETENCE [None]
  - MUSCLE NECROSIS [None]
  - PULMONARY OEDEMA [None]
  - PYREXIA [None]
  - RENAL FAILURE [None]
  - RHABDOMYOLYSIS [None]
  - VENTRICULAR DYSFUNCTION [None]
